FAERS Safety Report 25442341 (Version 2)
Quarter: 2025Q2

REPORT INFORMATION
  Report Type: Spontaneous
  Country: CN (occurrence: CN)
  Receive Date: 20250616
  Receipt Date: 20250624
  Transmission Date: 20250717
  Serious: Yes (Hospitalization)
  Sender: ABBVIE
  Company Number: CN-TAKEDA-2025TUS053210

PATIENT
  Age: 9 Year
  Sex: Female
  Weight: 39 kg

DRUGS (1)
  1. ENANTONE LP [Suspect]
     Active Substance: LEUPROLIDE ACETATE
     Indication: Precocious puberty
     Dosage: 11.25 MILLIGRAM, Q3MONTHS
     Route: 058
     Dates: start: 20241204, end: 20250216

REACTIONS (3)
  - Pustule [Recovered/Resolved with Sequelae]
  - Injection site erythema [Recovered/Resolved with Sequelae]
  - Injection site swelling [Recovered/Resolved with Sequelae]

NARRATIVE: CASE EVENT DATE: 20250217
